FAERS Safety Report 19153959 (Version 1)
Quarter: 2021Q2

REPORT INFORMATION
  Report Type: Spontaneous
  Country: IT (occurrence: IT)
  Receive Date: 20210419
  Receipt Date: 20210419
  Transmission Date: 20210717
  Serious: Yes (Other)
  Sender: FDA-Public Use
  Company Number: IT-MYLANLABS-2021M1022556

PATIENT
  Age: 18 Year
  Sex: Male

DRUGS (2)
  1. CANAKINUMAB. [Suspect]
     Active Substance: CANAKINUMAB
     Indication: MEVALONATE KINASE DEFICIENCY
     Dosage: 150 MILLIGRAM, EVERY 6 WEEKS
     Route: 065
  2. ISOTRETINOIN. [Suspect]
     Active Substance: ISOTRETINOIN
     Indication: ACNE CYSTIC
     Dosage: UNK, UNKNOWN
     Route: 048

REACTIONS (1)
  - Anal abscess [Recovered/Resolved]
